FAERS Safety Report 6545044-9 (Version None)
Quarter: 2010Q1

REPORT INFORMATION
  Report Type: 
  Country: None (occurrence: None)
  Receive Date: 20100121
  Receipt Date: 20100114
  Transmission Date: 20100710
  Serious: Yes (Life-Threatening)
  Sender: FDA-Public Use
  Company Number: B0626250A

PATIENT
  Sex: Male

DRUGS (1)
  1. ZINACEF [Suspect]
     Indication: PROPHYLAXIS
     Dosage: 750MG PER DAY
     Route: 042
     Dates: start: 20100107

REACTIONS (8)
  - BLOOD PRESSURE IMMEASURABLE [None]
  - CHEST PAIN [None]
  - DYSPNOEA [None]
  - ERYTHEMA [None]
  - MALAISE [None]
  - RASH ERYTHEMATOUS [None]
  - RASH MACULAR [None]
  - TREMOR [None]
